FAERS Safety Report 17977158 (Version 2)
Quarter: 2020Q3

REPORT INFORMATION
  Report Type: Report from Study
  Country: PE (occurrence: PE)
  Receive Date: 20200702
  Receipt Date: 20200923
  Transmission Date: 20201103
  Serious: Yes (Other)
  Sender: FDA-Public Use
  Company Number: NVSC2020PE179272

PATIENT
  Age: 57 Year
  Sex: Male

DRUGS (4)
  1. SANDOSTATIN LAR DEPOT [Suspect]
     Active Substance: OCTREOTIDE ACETATE
     Indication: NEUROENDOCRINE TUMOUR
     Dosage: 30 MG (EVERY 15 DAYS)
     Route: 030
     Dates: start: 20180601, end: 20200622
  2. AFINITOR [Suspect]
     Active Substance: EVEROLIMUS
     Indication: NEUROENDOCRINE TUMOUR
     Dosage: 10 MG, QD
     Route: 048
     Dates: start: 20190625, end: 20200622
  3. SANDOSTATIN LAR DEPOT [Suspect]
     Active Substance: OCTREOTIDE ACETATE
  4. SANDOSTATIN LAR DEPOT [Suspect]
     Active Substance: OCTREOTIDE ACETATE
     Dosage: 30 MG, Q2W (ONCE EVERY 2 WEEKS)
     Route: 030
     Dates: start: 20190715

REACTIONS (12)
  - Inappropriate schedule of product administration [Unknown]
  - Back pain [Recovering/Resolving]
  - Constipation [Unknown]
  - Oropharyngeal pain [Recovering/Resolving]
  - Depression [Unknown]
  - Coronavirus infection [Not Recovered/Not Resolved]
  - Pruritus [Recovering/Resolving]
  - SARS-CoV-2 test positive [Recovering/Resolving]
  - Malaise [Not Recovered/Not Resolved]
  - Depressed mood [Unknown]
  - Anoxia [Recovering/Resolving]
  - Pain [Unknown]

NARRATIVE: CASE EVENT DATE: 20200614
